FAERS Safety Report 4332875-9 (Version None)
Quarter: 2004Q1

REPORT INFORMATION
  Report Type: 
  Country: None (occurrence: None)
  Receive Date: 20040330
  Receipt Date: 20040323
  Transmission Date: 20041129
  Serious: Yes (Hospitalization)
  Sender: FDA-Public Use
  Company Number: 231349K04USA

PATIENT
  Age: 31 Year
  Sex: Female

DRUGS (1)
  1. REBIF [Suspect]
     Indication: MULTIPLE SCLEROSIS
     Dates: start: 20030401

REACTIONS (4)
  - ABDOMINAL PAIN [None]
  - INFLUENZA [None]
  - IRRITABLE BOWEL SYNDROME [None]
  - UTERINE PROLAPSE [None]
